FAERS Safety Report 5044071-0 (Version None)
Quarter: 2006Q3

REPORT INFORMATION
  Report Type: 
  Country: None (occurrence: None)
  Receive Date: 20060706
  Receipt Date: 20050809
  Transmission Date: 20061208
  Serious: Yes (Hospitalization)
  Sender: FDA-Public Use
  Company Number: JP-AVENTIS-200611995JP

PATIENT
  Age: 74 Year
  Sex: Female

DRUGS (9)
  1. ARAVA [Suspect]
     Indication: RHEUMATOID ARTHRITIS
     Route: 048
     Dates: start: 20050228, end: 20060627
  2. LOXONIN [Suspect]
     Dates: end: 20060627
  3. CYTOTEC [Suspect]
     Dates: end: 20060627
  4. LENDORMIN [Suspect]
     Dates: end: 20060627
  5. DEPAS [Suspect]
     Dates: end: 20060627
  6. BONALON [Suspect]
     Dates: start: 20050726, end: 20060627
  7. FERROMIA [Suspect]
     Dates: end: 20060627
  8. BENET [Concomitant]
  9. AMLODIN [Concomitant]
     Dates: end: 20060627

REACTIONS (4)
  - ALANINE AMINOTRANSFERASE INCREASED [None]
  - ASPARTATE AMINOTRANSFERASE INCREASED [None]
  - HEPATIC FUNCTION ABNORMAL [None]
  - RASH [None]
